FAERS Safety Report 23605162 (Version 1)
Quarter: 2024Q1

REPORT INFORMATION
  Report Type: Spontaneous
  Country: FR (occurrence: FR)
  Receive Date: 20240307
  Receipt Date: 20240307
  Transmission Date: 20240410
  Serious: Yes (Other)
  Sender: FDA-Public Use
  Company Number: None

PATIENT
  Age: 37 Year
  Sex: Male

DRUGS (2)
  1. XANAX [Suspect]
     Active Substance: ALPRAZOLAM
     Indication: Product used for unknown indication
     Dosage: QD, 12 TO 18 TABLETS / DAY
     Route: 048
     Dates: start: 2021
  2. SUBUTEX [Suspect]
     Active Substance: BUPRENORPHINE HYDROCHLORIDE
     Indication: Product used for unknown indication
     Dosage: QD, 5 TO 7 TABLETS / DAY
     Route: 048
     Dates: start: 2010

REACTIONS (1)
  - Drug use disorder [Not Recovered/Not Resolved]
